FAERS Safety Report 19095051 (Version 2)
Quarter: 2021Q2

REPORT INFORMATION
  Report Type: Spontaneous
  Country: DE (occurrence: DE)
  Receive Date: 20210405
  Receipt Date: 20210419
  Transmission Date: 20210717
  Serious: Yes (Hospitalization)
  Sender: FDA-Public Use
  Company Number: ALC2021DE002313

PATIENT

DRUGS (1)
  1. FLUORESCITE 10% INJECTION [Suspect]
     Active Substance: FLUORESCEIN SODIUM
     Indication: SURGERY
     Dosage: UNK
     Route: 013

REACTIONS (2)
  - Incorrect route of product administration [Recovered/Resolved]
  - Yellow skin [Recovered/Resolved]

NARRATIVE: CASE EVENT DATE: 20210319
